FAERS Safety Report 10304278 (Version 2)
Quarter: 2014Q3

REPORT INFORMATION
  Report Type: Spontaneous
  Country: DE (occurrence: DE)
  Receive Date: 20140714
  Receipt Date: 20140905
  Transmission Date: 20150326
  Serious: Yes (Hospitalization)
  Sender: FDA-Public Use
  Company Number: DE-BRACCO-001699

PATIENT
  Age: 56 Year
  Sex: Male

DRUGS (1)
  1. MULTIHANCE [Suspect]
     Active Substance: GADOBENATE DIMEGLUMINE
     Indication: NUCLEAR MAGNETIC RESONANCE IMAGING BRAIN
     Route: 042
     Dates: start: 20140606, end: 20140606

REACTIONS (2)
  - Asthenia [Recovering/Resolving]
  - Malaise [Unknown]

NARRATIVE: CASE EVENT DATE: 20140606
